FAERS Safety Report 11882176 (Version 1)
Quarter: 2015Q4

REPORT INFORMATION
  Report Type: Spontaneous
  Country: TW (occurrence: TW)
  Receive Date: 20151231
  Receipt Date: 20151231
  Transmission Date: 20160305
  Serious: Yes (Death, Hospitalization)
  Sender: FDA-Public Use
  Company Number: TW-CELGENE-TWN-2015120383

PATIENT
  Age: 67 Year
  Sex: Female

DRUGS (1)
  1. REVLIMID [Suspect]
     Active Substance: LENALIDOMIDE
     Indication: PLASMA CELL MYELOMA
     Dosage: 10 MILLIGRAM
     Route: 048
     Dates: start: 20151125

REACTIONS (7)
  - Lung neoplasm malignant [Fatal]
  - Somnolence [Unknown]
  - Renal failure [Unknown]
  - Dizziness [Unknown]
  - Pancytopenia [Unknown]
  - Thrombocytopenia [Unknown]
  - Asthenia [Unknown]

NARRATIVE: CASE EVENT DATE: 20151128
